FAERS Safety Report 6158440-9 (Version None)
Quarter: 2009Q2

REPORT INFORMATION
  Report Type: 
  Country: None (occurrence: None)
  Receive Date: 20090414
  Receipt Date: 20090414
  Transmission Date: 20091009
  Serious: No
  Sender: FDA-Public Use
  Company Number: None

PATIENT
  Age: 59 Year
  Sex: Female
  Weight: 68.0396 kg

DRUGS (14)
  1. FOSAMAX [Suspect]
     Indication: PROPHYLAXIS
     Dosage: 10 MG DAILY 047
     Dates: start: 19990101
  2. FOSAMAX [Suspect]
     Indication: RESORPTION BONE INCREASED
     Dosage: 10 MG DAILY 047
     Dates: start: 19990101
  3. FOSAMAX [Suspect]
     Dosage: 70 MG WEELKY 047
  4. PULMICORT TURBOHALER (STEROID) [Concomitant]
  5. COMBIVENT [Concomitant]
  6. SINGULAIR [Concomitant]
  7. LASIX [Concomitant]
  8. POTASSIUM CL [Concomitant]
  9. VIT B [Concomitant]
  10. VIT C [Concomitant]
  11. VIT E [Concomitant]
  12. COQ10 [Concomitant]
  13. RED YEAST RICE [Concomitant]
  14. CALCIUM W/VIT D [Concomitant]

REACTIONS (4)
  - ALLERGY TO ANIMAL [None]
  - IRIDOCYCLITIS [None]
  - PRODUCT CONTAMINATION [None]
  - PRODUCT QUALITY ISSUE [None]
